FAERS Safety Report 4641289-3 (Version None)
Quarter: 2005Q2

REPORT INFORMATION
  Report Type: 
  Country: None (occurrence: None)
  Receive Date: 20050421
  Receipt Date: 20050414
  Transmission Date: 20051028
  Serious: Yes (Other)
  Sender: FDA-Public Use
  Company Number: PHBS2005SE05372

PATIENT
  Age: 47 Year
  Sex: Female

DRUGS (2)
  1. VOLTAREN [Suspect]
     Indication: CHOLELITHIASIS
     Route: 054
     Dates: start: 20050101
  2. VOLTAREN [Suspect]
     Dates: start: 20050101

REACTIONS (1)
  - DEAFNESS [None]
